FAERS Safety Report 20638658 (Version 1)
Quarter: 2022Q1

REPORT INFORMATION
  Report Type: Spontaneous
  Country: JP (occurrence: JP)
  Receive Date: 20220325
  Receipt Date: 20220325
  Transmission Date: 20220424
  Serious: Yes (Other)
  Sender: FDA-Public Use
  Company Number: JP-PFIZER INC-202200434247

PATIENT
  Age: 4 Year
  Sex: Female
  Weight: 17 kg

DRUGS (17)
  1. METHOTREXATE [Suspect]
     Active Substance: METHOTREXATE
     Indication: Philadelphia positive acute lymphocytic leukaemia
     Dosage: 12 MG, 1X/DAY
     Route: 037
     Dates: start: 20211124, end: 20211124
  2. METHOTREXATE [Suspect]
     Active Substance: METHOTREXATE
     Dosage: 13 MG, 1X/DAY
     Route: 037
     Dates: start: 20211203, end: 20211203
  3. CYTARABINE [Suspect]
     Active Substance: CYTARABINE
     Indication: Philadelphia positive acute lymphocytic leukaemia
     Dosage: 30 MG, 1X/DAY
     Route: 037
     Dates: start: 20211203, end: 20211203
  4. SPRYCEL [Suspect]
     Active Substance: DASATINIB
     Indication: Philadelphia positive acute lymphocytic leukaemia
     Dosage: 50 MG, 1X/DAY
     Route: 048
     Dates: start: 20211129, end: 20211206
  5. PREDNISOLONE SODIUM SUCCINATE [Suspect]
     Active Substance: PREDNISOLONE SODIUM SUCCINATE
     Dosage: 10 MG, 1X/DAY
     Route: 037
     Dates: start: 20211203, end: 20211203
  6. PREDNISOLONE SODIUM SUCCINATE [Suspect]
     Active Substance: PREDNISOLONE SODIUM SUCCINATE
     Dosage: UNK
     Route: 042
     Dates: start: 20211122, end: 20211228
  7. ALUMINUM HYDROXIDE\MAGNESIUM HYDROXIDE [Concomitant]
     Active Substance: ALUMINUM HYDROXIDE\MAGNESIUM HYDROXIDE
     Dosage: 1.2 G, 1X/DAY
     Route: 048
     Dates: start: 20211127, end: 20220105
  8. ALLOPURINOL [Concomitant]
     Active Substance: ALLOPURINOL
     Dosage: 50 MG, 3X/DAY
     Route: 048
     Dates: start: 20211129, end: 20211215
  9. SULFAMETHOXAZOLE\TRIMETHOPRIM [Concomitant]
     Active Substance: SULFAMETHOXAZOLE\TRIMETHOPRIM
     Dosage: 0.75 DF, 2X/DAY
     Route: 048
     Dates: start: 20211124
  10. PIPERACILLIN SODIUM\TAZOBACTAM SODIUM [Concomitant]
     Active Substance: PIPERACILLIN SODIUM\TAZOBACTAM SODIUM
     Dosage: 1.678 G, 3X/DAY
     Route: 041
     Dates: start: 20211122, end: 20211214
  11. MICAFUNGIN SODIUM [Concomitant]
     Active Substance: MICAFUNGIN SODIUM
     Dosage: 100 MG, 1X/DAY
     Route: 041
     Dates: start: 20211125, end: 20211228
  12. POLARAMINE [Concomitant]
     Active Substance: DEXCHLORPHENIRAMINE MALEATE
     Dosage: 1.5 MG
     Route: 042
     Dates: start: 20211129, end: 20211130
  13. ATROPINE [Concomitant]
     Active Substance: ATROPINE
     Dosage: 0.15 MG
     Route: 042
     Dates: start: 20211203, end: 20211203
  14. MIDAZOLAM [Concomitant]
     Active Substance: MIDAZOLAM
     Dosage: 1.5 MG
     Route: 042
     Dates: start: 20211203, end: 20211203
  15. KETALAR [Concomitant]
     Active Substance: KETAMINE HYDROCHLORIDE
     Dosage: 15 MG
     Route: 042
     Dates: start: 20211203, end: 20211203
  16. GRANISETRON [Concomitant]
     Active Substance: GRANISETRON
     Dosage: 0.6 MG
     Route: 042
     Dates: start: 20211203, end: 20211203
  17. ATARAX-P [HYDROXYZINE HYDROCHLORIDE] [Concomitant]
     Dosage: 15 MG
     Route: 042
     Dates: start: 20211203, end: 20211203

REACTIONS (2)
  - Liver disorder [Recovered/Resolved]
  - Off label use [Unknown]

NARRATIVE: CASE EVENT DATE: 20211124
